FAERS Safety Report 11550825 (Version 1)
Quarter: 2015Q3

REPORT INFORMATION
  Report Type: Spontaneous
  Country: US (occurrence: US)
  Receive Date: 20150903
  Receipt Date: 20150903
  Transmission Date: 20151125
  Serious: No
  Sender: FDA-Public Use
  Company Number: US-ELI_LILLY_AND_COMPANY-US201211002150

PATIENT
  Age: 57 Year
  Sex: Female

DRUGS (9)
  1. HUMALOG [Suspect]
     Active Substance: INSULIN LISPRO
     Dosage: 30 IU, TID
  2. HUMALOG [Suspect]
     Active Substance: INSULIN LISPRO
     Dosage: 30 IU, TID
  3. HUMALOG [Suspect]
     Active Substance: INSULIN LISPRO
     Dosage: 30 IU, TID
  4. HUMALOG [Suspect]
     Active Substance: INSULIN LISPRO
     Dosage: 30 IU, TID
  5. METFORMIN [Concomitant]
     Active Substance: METFORMIN HYDROCHLORIDE
     Dosage: 1000 MG, BID
  6. VICTOZA [Concomitant]
     Active Substance: LIRAGLUTIDE
  7. HUMALOG [Suspect]
     Active Substance: INSULIN LISPRO
     Dosage: 30 IU, TID
  8. LANTUS [Concomitant]
     Active Substance: INSULIN GLARGINE
     Dosage: 90 U, EACH EVENING
  9. HUMALOG [Suspect]
     Active Substance: INSULIN LISPRO
     Indication: DIABETES MELLITUS
     Dosage: UNK UNK, PRN

REACTIONS (7)
  - Blood glucose fluctuation [Unknown]
  - Food intolerance [Unknown]
  - Injection site pain [Unknown]
  - Blood glucose increased [Unknown]
  - Influenza [Unknown]
  - Blood glucose decreased [Unknown]
  - Glycosylated haemoglobin increased [Unknown]

NARRATIVE: CASE EVENT DATE: 2012
